FAERS Safety Report 6530809-X (Version None)
Quarter: 2010Q1

REPORT INFORMATION
  Report Type: 
  Country: None (occurrence: None)
  Receive Date: 20100108
  Receipt Date: 20090309
  Transmission Date: 20100710
  Serious: No
  Sender: FDA-Public Use
  Company Number: A0772344A

PATIENT
  Age: 68 Year
  Sex: Female

DRUGS (1)
  1. LOVAZA [Suspect]
     Dosage: 1G FOUR TIMES PER DAY
     Route: 048
     Dates: start: 20081201

REACTIONS (2)
  - DYSGEUSIA [None]
  - ERUCTATION [None]
